FAERS Safety Report 5010680-8 (Version None)
Quarter: 2006Q2

REPORT INFORMATION
  Report Type: 
  Country: None (occurrence: None)
  Receive Date: 20060523
  Receipt Date: 20060511
  Transmission Date: 20061013
  Serious: Yes (Other)
  Sender: FDA-Public Use
  Company Number: 2006063208

PATIENT
  Sex: Male

DRUGS (1)
  1. AZULFIDINE [Suspect]
     Indication: ARTHRITIS REACTIVE
     Dates: start: 20040101, end: 20060215

REACTIONS (3)
  - SPERMATOZOA MORPHOLOGY ABNORMAL [None]
  - TINNITUS [None]
  - VIIITH NERVE INJURY [None]
